FAERS Safety Report 21253273 (Version 1)
Quarter: 2022Q3

REPORT INFORMATION
  Report Type: Spontaneous
  Country: US (occurrence: None)
  Receive Date: 20220824
  Receipt Date: 20220824
  Transmission Date: 20221027
  Serious: Yes (Hospitalization)
  Sender: FDA-Public Use
  Company Number: None

PATIENT
  Sex: Female
  Weight: 57.9 kg

DRUGS (2)
  1. CARBOPLATIN [Suspect]
     Active Substance: CARBOPLATIN
     Dates: end: 20220808
  2. TAXOL [Suspect]
     Active Substance: PACLITAXEL
     Dates: end: 20220808

REACTIONS (11)
  - Pain [None]
  - Nausea [None]
  - Vomiting [None]
  - Cough [None]
  - Oxygen saturation decreased [None]
  - Tachypnoea [None]
  - Pneumonia [None]
  - Small intestinal obstruction [None]
  - Hernia obstructive [None]
  - Neutropenic infection [None]
  - Electrocardiogram abnormal [None]

NARRATIVE: CASE EVENT DATE: 20220814
